FAERS Safety Report 11114153 (Version 2)
Quarter: 2015Q3

REPORT INFORMATION
  Report Type: Report from Study
  Country: VE (occurrence: VE)
  Receive Date: 20150514
  Receipt Date: 20150702
  Transmission Date: 20151125
  Serious: Yes (Death)
  Sender: FDA-Public Use
  Company Number: PHHY2015VE056393

PATIENT
  Age: 86 Year
  Sex: Female

DRUGS (5)
  1. RIVOTRIL [Concomitant]
     Active Substance: CLONAZEPAM
     Indication: AFFECTIVE DISORDER
     Route: 065
  2. ACLASTA [Suspect]
     Active Substance: ZOLEDRONIC ACID
     Dosage: 5 MG, ANNUAL
     Route: 042
     Dates: start: 20111102
  3. ATACAND [Concomitant]
     Active Substance: CANDESARTAN CILEXETIL
     Indication: HYPERTENSION
     Route: 065
  4. TEGRETOL [Suspect]
     Active Substance: CARBAMAZEPINE
     Indication: AFFECTIVE DISORDER
     Dosage: 1 OT, UNK
     Route: 065
  5. ACLASTA [Suspect]
     Active Substance: ZOLEDRONIC ACID
     Indication: OSTEOPOROSIS
     Dosage: UNK, EVERY YEAR
     Route: 042
     Dates: start: 201011

REACTIONS (3)
  - Respiratory arrest [Fatal]
  - Lung disorder [Fatal]
  - Off label use [Unknown]

NARRATIVE: CASE EVENT DATE: 20120210
